FAERS Safety Report 4833393-1 (Version None)
Quarter: 2005Q4

REPORT INFORMATION
  Report Type: 
  Country: None (occurrence: None)
  Receive Date: 20051117
  Receipt Date: 20051109
  Transmission Date: 20060501
  Serious: Yes (Death)
  Sender: FDA-Public Use
  Company Number: 2005-UK-01873UK

PATIENT
  Age: 49 Year
  Sex: Male

DRUGS (5)
  1. MORPHINE [Suspect]
  2. CODEINE SUL TAB [Suspect]
  3. NORTRIPTYLINE HCL [Suspect]
  4. DIHYDROCODEINE (DIHYDROCODEINE) [Suspect]
  5. AMITRIPTYLINE HYDROCHLORIDE [Suspect]

REACTIONS (2)
  - DRUG INTERACTION [None]
  - INTENTIONAL DRUG MISUSE [None]
